FAERS Safety Report 9781162 (Version 1)
Quarter: 2013Q4

REPORT INFORMATION
  Report Type: Spontaneous
  Country: US (occurrence: None)
  Receive Date: 20131223
  Receipt Date: 20131223
  Transmission Date: 20140711
  Serious: Yes (Disabling)
  Sender: FDA-Public Use
  Company Number: None

PATIENT
  Age: 58 Year
  Sex: Female
  Weight: 79.38 kg

DRUGS (2)
  1. XANAX [Suspect]
     Indication: PAIN
     Dosage: 1 TAB 3 X DAY THREE TIMES DAILY TAKEN BY MOUTH
     Route: 048
     Dates: start: 20120131, end: 20130606
  2. VALIUM [Suspect]
     Indication: PAIN
     Route: 067
     Dates: start: 20120515, end: 20131222

REACTIONS (9)
  - Insomnia [None]
  - Myalgia [None]
  - Neuralgia [None]
  - Nausea [None]
  - Fatigue [None]
  - Vertigo [None]
  - Depression [None]
  - Drug dependence [None]
  - Drug withdrawal syndrome [None]
